FAERS Safety Report 23777177 (Version 1)
Quarter: 2024Q2

REPORT INFORMATION
  Report Type: Spontaneous
  Country: NL (occurrence: NL)
  Receive Date: 20240424
  Receipt Date: 20240424
  Transmission Date: 20240716
  Serious: Yes (Other)
  Sender: FDA-Public Use
  Company Number: None

PATIENT
  Age: 41 Year
  Sex: Male
  Weight: 80 kg

DRUGS (1)
  1. VENLAFAXINE [Suspect]
     Active Substance: VENLAFAXINE HYDROCHLORIDE
     Indication: Panic attack
     Dosage: MODIFIED-RELEASE CAPSULE, 75 MG (MILLIGRAM), BRAND NAME NOT SPECIFIED
     Route: 065
     Dates: start: 19980101

REACTIONS (1)
  - Sleep apnoea syndrome [Recovering/Resolving]
